FAERS Safety Report 25414360 (Version 1)
Quarter: 2025Q2

REPORT INFORMATION
  Report Type: Spontaneous
  Country: US (occurrence: US)
  Receive Date: 20250609
  Receipt Date: 20250609
  Transmission Date: 20250716
  Serious: No
  Sender: SANOFI AVENTIS
  Company Number: US-SA-2025SA161751

PATIENT
  Sex: Female
  Weight: 85.45 kg

DRUGS (12)
  1. DUPIXENT [Suspect]
     Active Substance: DUPILUMAB
     Indication: Asthma
     Dosage: 300 MG, QOW
     Route: 058
  2. TRULICITY [Concomitant]
     Active Substance: DULAGLUTIDE
  3. ROSUVASTATIN CALCIUM [Concomitant]
     Active Substance: ROSUVASTATIN CALCIUM
  4. DILTIAZEM [Concomitant]
     Active Substance: DILTIAZEM
  5. JARDIANCE [Concomitant]
     Active Substance: EMPAGLIFLOZIN
  6. FLUCONAZOLE [Concomitant]
     Active Substance: FLUCONAZOLE
  7. TRELEGY ELLIPTA [Concomitant]
     Active Substance: FLUTICASONE FUROATE\UMECLIDINIUM BROMIDE\VILANTEROL TRIFENATATE
  8. ARMOUR THYROID [Concomitant]
     Active Substance: THYROID, PORCINE
  9. POTASSIUM CHLORIDE [Concomitant]
     Active Substance: POTASSIUM CHLORIDE
  10. LOSARTAN POTASSIUM [Concomitant]
     Active Substance: LOSARTAN POTASSIUM
  11. CARVEDILOL [Concomitant]
     Active Substance: CARVEDILOL
  12. TRAZODONE [Concomitant]
     Active Substance: TRAZODONE HYDROCHLORIDE

REACTIONS (2)
  - Pruritus [Unknown]
  - Asthma [Unknown]
